FAERS Safety Report 15132421 (Version 5)
Quarter: 2018Q3

REPORT INFORMATION
  Report Type: Report from Study
  Country: CZ (occurrence: CZ)
  Receive Date: 20180711
  Receipt Date: 20180927
  Transmission Date: 20181010
  Serious: Yes (Hospitalization, Disabling, Other)
  Sender: FDA-Public Use
  Company Number: CZ-AMGEN-CZECT2018045448

PATIENT
  Age: 67 Year
  Sex: Male
  Weight: 104 kg

DRUGS (15)
  1. LOZAP [Concomitant]
     Dosage: 50?100 MG, UNK
     Dates: start: 20180213, end: 20180413
  2. CARFILZOMIB [Suspect]
     Active Substance: CARFILZOMIB
     Indication: PLASMA CELL MYELOMA
     Dosage: UNK MG, PER CHEMO REGIM
     Route: 042
     Dates: start: 20171220
  3. MODURETIC 5?50 [Concomitant]
     Active Substance: AMILORIDE HYDROCHLORIDE\HYDROCHLOROTHIAZIDE
     Dosage: 1 UNK, UNK
     Dates: start: 20180221, end: 20180403
  4. MILURIT [Concomitant]
     Active Substance: ALLOPURINOL
     Dosage: 100 MG, UNK
     Dates: start: 20161122, end: 20180406
  5. BETALOC ZOK [Concomitant]
     Active Substance: METOPROLOL SUCCINATE
     Dosage: 50 MG, UNK
     Dates: start: 20180306, end: 20180403
  6. ZARZIO [Concomitant]
     Active Substance: FILGRASTIM
     Dosage: 48 IU, UNK
     Dates: start: 20180116, end: 20180116
  7. VALACICLOVIR [Concomitant]
     Active Substance: VALACYCLOVIR HYDROCHLORIDE
     Dosage: 500 MG, UNK
     Route: 048
     Dates: start: 20171220
  8. PLATELETS [Concomitant]
     Active Substance: HUMAN PLATELET, ALLOGENIC
     Dosage: 1 UNK, UNK
     Dates: start: 20180109, end: 20180116
  9. SALINE [Concomitant]
     Active Substance: SODIUM CHLORIDE
     Dosage: 60?500 ML, UNK
     Route: 042
     Dates: start: 20171220, end: 20180430
  10. BISEPTOL [Concomitant]
     Active Substance: SULFAMETHOXAZOLE\TRIMETHOPRIM
     Dosage: 480 MG, UNK
     Route: 048
     Dates: start: 20170421
  11. EBRANTIL [Concomitant]
     Active Substance: URAPIDIL
     Dosage: 30 MG, UNK
     Dates: start: 20180327, end: 20180405
  12. DEXAMETHASONE. [Concomitant]
     Active Substance: DEXAMETHASONE
     Indication: PLASMA CELL MYELOMA
     Dosage: 20?40MG, UNK
     Route: 048
     Dates: start: 20171220, end: 20180320
  13. PRESTARIUM [Concomitant]
     Active Substance: PERINDOPRIL
     Dosage: 2.5 MG, UNK
     Dates: start: 20171205
  14. AGEN [Concomitant]
     Active Substance: AMLODIPINE BESYLATE
     Dosage: 10 MG, UNK AND 1 UNK, UNK
     Dates: start: 20180302
  15. NOLPAZA [Concomitant]
     Active Substance: PANTOPRAZOLE SODIUM
     Dosage: 20 MG, UNK
     Route: 048
     Dates: start: 20170421

REACTIONS (2)
  - Acute kidney injury [Recovered/Resolved]
  - Venoocclusive liver disease [Recovered/Resolved]

NARRATIVE: CASE EVENT DATE: 20180403
